FAERS Safety Report 14561328 (Version 3)
Quarter: 2019Q4

REPORT INFORMATION
  Report Type: Spontaneous
  Country: US (occurrence: US)
  Receive Date: 20180222
  Receipt Date: 20191205
  Transmission Date: 20200122
  Serious: No
  Sender: FDA-Public Use
  Company Number: US-PFIZER INC-2018074488

PATIENT
  Age: 83 Year
  Sex: Female

DRUGS (3)
  1. LYRICA [Suspect]
     Active Substance: PREGABALIN
     Dosage: 50 MG, UNK
  2. LYRICA [Suspect]
     Active Substance: PREGABALIN
     Dosage: 25 MG, 3X/DAY
     Dates: start: 201706
  3. LYRICA [Suspect]
     Active Substance: PREGABALIN
     Dosage: 25 MG, AS NEEDED (TAKE 1 CAPSULE(S) TWICE A DAY BY ORAL ROUTE AS NEEDED FOR 90 DAYS)
     Route: 048

REACTIONS (3)
  - Arthritis [Unknown]
  - Blood pressure increased [Unknown]
  - Fall [Unknown]
